FAERS Safety Report 15384603 (Version 2)
Quarter: 2018Q4

REPORT INFORMATION
  Report Type: Spontaneous
  Country: FR (occurrence: FR)
  Receive Date: 20180914
  Receipt Date: 20181025
  Transmission Date: 20190204
  Serious: Yes (Hospitalization, Other)
  Sender: FDA-Public Use
  Company Number: FR-AUROBINDO-AUR-APL-2018-044377

PATIENT
  Age: 62 Year
  Sex: Female
  Weight: 82 kg

DRUGS (1)
  1. SPIRONOLACTONE ARROW FILM-COATED TABLET 25 MG [Suspect]
     Active Substance: SPIRONOLACTONE
     Indication: ASCITES
     Dosage: 2 DOSAGE FORM, DAILY
     Route: 048
     Dates: start: 20180806, end: 20180821

REACTIONS (2)
  - Hepatitis [Recovered/Resolved]
  - Cholestasis [Recovering/Resolving]

NARRATIVE: CASE EVENT DATE: 20180821
